FAERS Safety Report 5771953-4 (Version None)
Quarter: 2008Q2

REPORT INFORMATION
  Report Type: 
  Country: None (occurrence: None)
  Receive Date: 20080612
  Receipt Date: 20080612
  Transmission Date: 20081010
  Serious: Yes (Other)
  Sender: FDA-Public Use
  Company Number: None

PATIENT
  Sex: Male
  Weight: 72.5755 kg

DRUGS (2)
  1. NEXIUM [Suspect]
     Indication: FLATULENCE
     Dosage: ONE DAILY PO
     Route: 048
     Dates: start: 20070214, end: 20070221
  2. NEXIUM [Suspect]
     Indication: HIATUS HERNIA
     Dosage: ONE DAILY PO
     Route: 048
     Dates: start: 20070214, end: 20070221

REACTIONS (1)
  - HEADACHE [None]
